FAERS Safety Report 8437528-3 (Version None)
Quarter: 2012Q2

REPORT INFORMATION
  Report Type: 
  Country: None (occurrence: None)
  Receive Date: 20120614
  Receipt Date: 20120423
  Transmission Date: 20120825
  Serious: No
  Sender: FDA-Public Use
  Company Number: US-AMGEN-USASP2012025456

PATIENT
  Age: 73 Year
  Sex: Female

DRUGS (2)
  1. XGEVA [Suspect]
     Indication: OSTEOPOROSIS
     Dosage: UNK UNK, Q4WK
     Dates: start: 20120201
  2. XGEVA [Suspect]
     Indication: NEOPLASM

REACTIONS (8)
  - INFECTION [None]
  - BONE DISORDER [None]
  - KIDNEY INFECTION [None]
  - ABDOMINAL DISCOMFORT [None]
  - MUSCLE TWITCHING [None]
  - BURNING SENSATION [None]
  - FUNGAL INFECTION [None]
  - FEELING ABNORMAL [None]
